FAERS Safety Report 6040762-3 (Version None)
Quarter: 2009Q1

REPORT INFORMATION
  Report Type: 
  Country: None (occurrence: None)
  Receive Date: 20090116
  Receipt Date: 20080521
  Transmission Date: 20090719
  Serious: No
  Sender: FDA-Public Use
  Company Number: US-BRISTOL-MYERS SQUIBB COMPANY-14199038

PATIENT
  Age: 13 Year
  Sex: Male
  Weight: 77 kg

DRUGS (3)
  1. ABILIFY [Suspect]
     Indication: AFFECTIVE DISORDER
  2. STRATTERA [Suspect]
  3. CONCERTA [Concomitant]

REACTIONS (4)
  - BILIRUBINURIA [None]
  - BLOOD URINE PRESENT [None]
  - LIVER FUNCTION TEST ABNORMAL [None]
  - NAUSEA [None]
